FAERS Safety Report 13327998 (Version 1)
Quarter: 2017Q1

REPORT INFORMATION
  Report Type: Spontaneous
  Country: US (occurrence: US)
  Receive Date: 20170313
  Receipt Date: 20170313
  Transmission Date: 20170428
  Serious: No
  Sender: FDA-Public Use
  Company Number: US-JNJFOC-20170211782

PATIENT
  Age: 67 Year
  Sex: Female
  Weight: 79.38 kg

DRUGS (5)
  1. METFORMIN [Concomitant]
     Active Substance: METFORMIN HYDROCHLORIDE
     Indication: DIABETES MELLITUS
     Route: 065
  2. AMITRIPTYLINE [Concomitant]
     Active Substance: AMITRIPTYLINE
     Indication: DEPRESSION
     Route: 065
  3. LISINOPRIL. [Concomitant]
     Active Substance: LISINOPRIL
     Indication: HYPERTENSION
     Route: 065
  4. WOMENS ROGAINE UNSCENTED [Suspect]
     Active Substance: MINOXIDIL
     Route: 061
  5. WOMENS ROGAINE UNSCENTED [Suspect]
     Active Substance: MINOXIDIL
     Indication: ALOPECIA
     Dosage: LITTLE MORE THAN A HALF A CAPFUL, FOR ABOUT A MONTH
     Route: 061

REACTIONS (3)
  - Overdose [Not Recovered/Not Resolved]
  - Product quality issue [Unknown]
  - Hair growth abnormal [Not Recovered/Not Resolved]
